FAERS Safety Report 18019804 (Version 1)
Quarter: 2020Q3

REPORT INFORMATION
  Report Type: Spontaneous
  Country: US (occurrence: US)
  Receive Date: 20200714
  Receipt Date: 20200714
  Transmission Date: 20201103
  Serious: No
  Sender: FDA-Public Use
  Company Number: US-PFIZER INC-2020089144

PATIENT
  Age: 75 Year
  Sex: Female
  Weight: 87.54 kg

DRUGS (8)
  1. PROAIR HFA [Concomitant]
     Active Substance: ALBUTEROL SULFATE
     Dosage: 2 DF, AS NEEDED (90 UG, AS NEEDED (90 MCG INHALE 2 PUFFS EVERY 4?6 HOURS AS NEEDED)
     Route: 055
     Dates: start: 20071231
  2. CELEBREX [Suspect]
     Active Substance: CELECOXIB
     Dosage: 100 MG, 2X/DAY
     Route: 048
  3. VOLTAREN [DICLOFENAC] [Concomitant]
     Active Substance: DICLOFENAC SODIUM
     Indication: PAIN
     Dosage: UNK, 4X/DAY (1% TOPICAL GEL. APPLY 4 TIMES EVERY DAY)
     Route: 061
     Dates: start: 20200610
  4. CELEBREX [Suspect]
     Active Substance: CELECOXIB
     Dosage: 100 MG, 1X/DAY
     Route: 048
  5. LISINOPRIL. [Concomitant]
     Active Substance: LISINOPRIL
     Indication: HYPERTENSION
     Dosage: 40 MG, 1X/DAY
     Dates: start: 20121211
  6. CELEBREX [Suspect]
     Active Substance: CELECOXIB
     Dosage: 100 MG, EVERY 2 DAYS [1 CAPSULE BY ORAL ROUTE EVERY 2 DAYS.]
     Route: 048
  7. FLOVENT [Concomitant]
     Active Substance: FLUTICASONE PROPIONATE
     Dosage: 1 DF, AS NEEDED (220 UG, AS NEEDED (220 MCG ONE PUFF BY INHALATION TWO TIMES AS NEEDED)
     Route: 055
     Dates: start: 20200228
  8. EPIPEN [Concomitant]
     Active Substance: EPINEPHRINE
     Indication: ANAPHYLACTIC REACTION
     Dosage: UNK, AS NEEDED (0.3ML/0.3MG USE INTRAMUSCULAR ONCE AS NEEDED)
     Route: 030
     Dates: start: 20120601

REACTIONS (2)
  - Off label use [Unknown]
  - Pain [Unknown]
